FAERS Safety Report 9027845 (Version 1)
Quarter: 2013Q1

REPORT INFORMATION
  Report Type: Spontaneous
  Country: US (occurrence: None)
  Receive Date: 20130115
  Receipt Date: 20130115
  Transmission Date: 20140127
  Serious: Yes (Other)
  Sender: FDA-Public Use
  Company Number: None

PATIENT
  Age: 7 Year
  Sex: Male
  Weight: 32.9 kg

DRUGS (1)
  1. ABILIFY [Suspect]
     Indication: AUTISM
     Dosage: 1 DOSE GIVEN
     Route: 048
     Dates: start: 20121228, end: 20121228

REACTIONS (9)
  - Headache [None]
  - Blood glucose increased [None]
  - Fatigue [None]
  - Mood altered [None]
  - Malaise [None]
  - Abnormal behaviour [None]
  - No therapeutic response [None]
  - Urine ketone body present [None]
  - Incorrect dose administered [None]
